FAERS Safety Report 24710563 (Version 1)
Quarter: 2024Q4

REPORT INFORMATION
  Report Type: Report from Study
  Country: US (occurrence: US)
  Receive Date: 20241209
  Receipt Date: 20241209
  Transmission Date: 20250115
  Serious: Yes (Hospitalization)
  Sender: SANOFI AVENTIS
  Company Number: US-SA-2024SA360221

PATIENT
  Age: 92 Year
  Sex: Male

DRUGS (11)
  1. DUPILUMAB [Suspect]
     Active Substance: DUPILUMAB
     Indication: Dermatitis atopic
     Dosage: 300 MG, QOW
     Route: 058
     Dates: start: 20240322
  2. VITAMIN D3 [Concomitant]
     Active Substance: CHOLECALCIFEROL
  3. MIDAMOR [Concomitant]
     Active Substance: AMILORIDE HYDROCHLORIDE
  4. VITAMINS [Concomitant]
     Active Substance: VITAMINS
  5. GABAPENTIN [Concomitant]
     Active Substance: GABAPENTIN
  6. RENACIDIN [Concomitant]
     Active Substance: CITRIC ACID MONOHYDRATE\GLUCONOLACTONE\MAGNESIUM CARBONATE
  7. METOPROLOL [Concomitant]
     Active Substance: METOPROLOL
  8. MIRTAZAPINE [Concomitant]
     Active Substance: MIRTAZAPINE
  9. OMEPRAZOLE [Concomitant]
     Active Substance: OMEPRAZOLE
  10. ADDEX-KALIUM [Concomitant]
  11. TERAZOSIN [Concomitant]
     Active Substance: TERAZOSIN HYDROCHLORIDE

REACTIONS (4)
  - Dysstasia [Unknown]
  - Blood sodium decreased [Unknown]
  - Dehydration [Unknown]
  - Dizziness [Unknown]

NARRATIVE: CASE EVENT DATE: 20241101
